FAERS Safety Report 5705838-6 (Version None)
Quarter: 2008Q2

REPORT INFORMATION
  Report Type: 
  Country: None (occurrence: None)
  Receive Date: 20080415
  Receipt Date: 20080407
  Transmission Date: 20081010
  Serious: Yes (Other)
  Sender: FDA-Public Use
  Company Number: US-ASTRAZENECA-2008UW04977

PATIENT
  Age: 60 Year
  Sex: Female
  Weight: 92.3 kg

DRUGS (8)
  1. CRESTOR [Suspect]
     Indication: BLOOD CHOLESTEROL INCREASED
     Route: 048
     Dates: start: 20071101
  2. NEXIUM [Concomitant]
     Route: 048
  3. ESTRACE [Concomitant]
     Indication: MENOPAUSE
     Route: 048
  4. SERTRALINE [Concomitant]
  5. FISH OIL [Concomitant]
  6. POLYETHYLENE GLYCOL [Concomitant]
     Indication: CONSTIPATION
     Route: 048
  7. RELPAX [Concomitant]
     Indication: MIGRAINE
     Route: 048
  8. COREG CR [Concomitant]
     Indication: HYPERTENSION
     Route: 048
     Dates: start: 20080307

REACTIONS (7)
  - BACK PAIN [None]
  - BLOOD PRESSURE DIASTOLIC INCREASED [None]
  - DYSPNOEA EXERTIONAL [None]
  - HEPATIC ENZYME INCREASED [None]
  - JOINT SWELLING [None]
  - NAUSEA [None]
  - PAIN IN EXTREMITY [None]
